FAERS Safety Report 11119457 (Version 3)
Quarter: 2015Q4

REPORT INFORMATION
  Report Type: Spontaneous
  Country: US (occurrence: US)
  Receive Date: 20150518
  Receipt Date: 20151119
  Transmission Date: 20160304
  Serious: Yes (Death, Hospitalization, Other)
  Sender: FDA-Public Use
  Company Number: US-MERCK-1505USA006615

PATIENT
  Sex: Female
  Weight: 58.96 kg

DRUGS (5)
  1. BYETTA [Suspect]
     Active Substance: EXENATIDE
     Indication: TYPE 2 DIABETES MELLITUS
     Dosage: 0.02 PEN INJ + 10 MCG/0.04 ML, BID
     Route: 065
     Dates: start: 200803, end: 201303
  2. JANUVIA [Suspect]
     Active Substance: SITAGLIPTIN PHOSPHATE
     Indication: TYPE 2 DIABETES MELLITUS
     Dosage: 100 MG, QD
     Route: 048
     Dates: start: 200903, end: 200911
  3. SIMVASTATIN TABLETS, USP [Concomitant]
     Active Substance: SIMVASTATIN
     Dosage: 80 MG, HS
     Route: 048
     Dates: start: 200904
  4. SIMVASTATIN TABLETS, USP [Concomitant]
     Active Substance: SIMVASTATIN
     Indication: PRODUCT USED FOR UNKNOWN INDICATION
     Dosage: 80 MG, HS
     Route: 048
  5. VICTOZA [Suspect]
     Active Substance: LIRAGLUTIDE
     Indication: TYPE 2 DIABETES MELLITUS
     Dosage: 18 MG/3 ML INJECT PEN + 12 MG, QAM
     Route: 065
     Dates: start: 20100909, end: 201104

REACTIONS (14)
  - Mammogram abnormal [Unknown]
  - Hyperlipidaemia [Unknown]
  - Death [Fatal]
  - Vision blurred [Unknown]
  - Visual impairment [Unknown]
  - Depression [Unknown]
  - Hernia [Unknown]
  - Pancreatic carcinoma stage IV [Unknown]
  - Helicobacter test positive [Unknown]
  - Weight decreased [Unknown]
  - Hypertension [Unknown]
  - Hypercholesterolaemia [Unknown]
  - Cough [Unknown]
  - Hypoglycaemia [Unknown]

NARRATIVE: CASE EVENT DATE: 200903
